FAERS Safety Report 12668634 (Version 5)
Quarter: 2017Q2

REPORT INFORMATION
  Report Type: Spontaneous
  Country: FR (occurrence: FR)
  Receive Date: 20160819
  Receipt Date: 20170515
  Transmission Date: 20170830
  Serious: No
  Sender: FDA-Public Use
  Company Number: FR-ABBVIE-16K-056-1702288-00

PATIENT
  Sex: Female

DRUGS (3)
  1. INFLECTRA [Suspect]
     Active Substance: INFLIXIMAB-DYYB
     Indication: COLITIS ULCERATIVE
     Route: 042
     Dates: start: 20151116, end: 20160224
  2. IMUREL [Suspect]
     Active Substance: AZATHIOPRINE SODIUM
     Indication: PRODUCT USED FOR UNKNOWN INDICATION
     Route: 048
  3. HUMIRA [Suspect]
     Active Substance: ADALIMUMAB
     Indication: COLITIS ULCERATIVE
     Route: 058
     Dates: start: 20161125

REACTIONS (11)
  - Folliculitis [Unknown]
  - Wound [Unknown]
  - Dry skin [Unknown]
  - Macule [Unknown]
  - Rash pustular [Unknown]
  - Skin plaque [Unknown]
  - Subcutaneous abscess [Unknown]
  - Skin lesion [Recovering/Resolving]
  - Skin exfoliation [Unknown]
  - Erythema [Unknown]
  - Stomatitis [Not Recovered/Not Resolved]

NARRATIVE: CASE EVENT DATE: 2016
